FAERS Safety Report 7531834-2 (Version None)
Quarter: 2011Q2

REPORT INFORMATION
  Report Type: 
  Country: None (occurrence: None)
  Receive Date: 20110608
  Receipt Date: 20110530
  Transmission Date: 20111010
  Serious: Yes (Hospitalization)
  Sender: FDA-Public Use
  Company Number: GR-ROCHE-777801

PATIENT
  Sex: Female
  Weight: 73 kg

DRUGS (8)
  1. HYDROCHLOROTHIAZIDE [Suspect]
     Route: 065
     Dates: start: 20110321
  2. ATORVASTATIN [Suspect]
     Route: 065
     Dates: start: 20100726
  3. TOCILIZUMAB [Suspect]
     Indication: RHEUMATOID ARTHRITIS
     Dosage: DATE OF LAST DOSE PRIOR SAE: 5 APR 11 DOSAGE FORM: 8MG/KGR TEMPORARILY INTERRUPTED
     Route: 042
     Dates: start: 20100202, end: 20110514
  4. METHOTREXATE [Suspect]
     Indication: RHEUMATOID ARTHRITIS
     Dosage: DATE OF LAST DOSE PRIOR TO SAE: 10 MAY 2011 TEMPORARILY INTERRUPTED
     Route: 048
     Dates: start: 20100202, end: 20110510
  5. ALPRAZOLAM [Suspect]
     Route: 065
  6. VALSARTAN [Suspect]
     Route: 065
     Dates: start: 20110321
  7. PAROXETINE HCL [Suspect]
     Route: 065
     Dates: start: 20060101
  8. AMLODIPINE [Suspect]
     Route: 065
     Dates: start: 20110321

REACTIONS (1)
  - PLEURISY [None]
